FAERS Safety Report 7331264-2 (Version None)
Quarter: 2011Q1

REPORT INFORMATION
  Report Type: 
  Country: None (occurrence: None)
  Receive Date: 20110303
  Receipt Date: 20110303
  Transmission Date: 20110831
  Serious: Yes (Other)
  Sender: FDA-Public Use
  Company Number: None

PATIENT
  Age: 36 Year
  Sex: Female
  Weight: 155.1302 kg

DRUGS (2)
  1. LEADER ALCOHOL SWABS 70% ISOPROPYL ALCOHOL CARDINAL HEALTH/TRIAD-GROUP [Suspect]
     Indication: TYPE 1 DIABETES MELLITUS
     Dosage: CLOSE TO 9 SWABS A DAY CUTANEOUS
     Route: 003
     Dates: start: 20101201, end: 20110302
  2. LEADER ALCOHOL SWABS 70% ISOPROPYL ALCOHOL CARDINAL HEALTH/TRIAD-GROUP [Suspect]
     Indication: DIABETES MELLITUS
     Dosage: CLOSE TO 9 SWABS A DAY CUTANEOUS
     Route: 003
     Dates: start: 20101201, end: 20110302

REACTIONS (10)
  - PYREXIA [None]
  - PURULENCE [None]
  - INCISION SITE INFECTION [None]
  - BACTERIAL INFECTION [None]
  - SWELLING [None]
  - PRODUCT QUALITY ISSUE [None]
  - ABSCESS [None]
  - FEELING ABNORMAL [None]
  - PAIN [None]
  - WOUND SECRETION [None]
